FAERS Safety Report 21389089 (Version 1)
Quarter: 2022Q3

REPORT INFORMATION
  Report Type: Spontaneous
  Country: DK (occurrence: DK)
  Receive Date: 20220929
  Receipt Date: 20220929
  Transmission Date: 20221027
  Serious: Yes (Other)
  Sender: FDA-Public Use
  Company Number: None

PATIENT
  Age: 21 Year
  Sex: Male

DRUGS (1)
  1. FINASTERIDE [Suspect]
     Active Substance: FINASTERIDE
     Indication: Alopecia
     Dosage: STRENGTH AND DOSAGE: UNKNOWN, DURATION : 7 MONTHS, UNKNOWN MAH
     Route: 065
     Dates: start: 201601, end: 201608

REACTIONS (3)
  - Libido decreased [Not Recovered/Not Resolved]
  - Erectile dysfunction [Not Recovered/Not Resolved]
  - Organic erectile dysfunction [Unknown]

NARRATIVE: CASE EVENT DATE: 20160101
